FAERS Safety Report 4358021-3 (Version None)
Quarter: 2004Q2

REPORT INFORMATION
  Report Type: 
  Country: None (occurrence: None)
  Receive Date: 20040510
  Receipt Date: 20040503
  Transmission Date: 20050107
  Serious: Yes (Life-Threatening, Hospitalization)
  Sender: FDA-Public Use
  Company Number: 2004UW08921

PATIENT
  Age: 69 Year
  Sex: Male
  Weight: 80 kg

DRUGS (14)
  1. ATENOLOL [Suspect]
     Indication: PAIN
     Dosage: 50 MG QD PO
     Route: 048
     Dates: start: 20030614, end: 20040326
  2. ENOXAPARIN SODIUM [Suspect]
     Indication: ACUTE CORONARY SYNDROME
     Dosage: 80 MG SQ
     Dates: start: 20040316, end: 20040318
  3. TIROFIBAN [Suspect]
     Indication: ACUTE CORONARY SYNDROME
     Dosage: 33 MG IV
     Route: 042
     Dates: start: 20040316, end: 20040319
  4. TIROFIBAN [Suspect]
     Indication: ACUTE CORONARY SYNDROME
     Dosage: 1000 UG IV
     Route: 042
     Dates: start: 20040316, end: 20040316
  5. NICORANDIL [Concomitant]
  6. AMLODIPINE [Concomitant]
  7. PRAVASTATIN [Concomitant]
  8. CLOPIDOGREL BISULFATE [Concomitant]
  9. OMEPRAZOLE [Concomitant]
  10. MELOXICAM [Concomitant]
  11. VALPROATE SODIUM [Concomitant]
  12. IMDUR [Concomitant]
  13. LASIX [Concomitant]
  14. ASPIRIN [Concomitant]

REACTIONS (10)
  - BURNING SENSATION [None]
  - CARDIAC ARREST [None]
  - FLUSHING [None]
  - PAIN [None]
  - PALLOR [None]
  - PARAESTHESIA [None]
  - PERIPHERAL COLDNESS [None]
  - SENSORY LOSS [None]
  - SYNCOPE VASOVAGAL [None]
  - VASOSPASM [None]
